FAERS Safety Report 8201328-X (Version None)
Quarter: 2012Q1

REPORT INFORMATION
  Report Type: 
  Country: None (occurrence: None)
  Receive Date: 20120312
  Receipt Date: 20120301
  Transmission Date: 20120608
  Serious: Yes (Other)
  Sender: FDA-Public Use
  Company Number: PHHY2011JP112335

PATIENT
  Sex: Male

DRUGS (10)
  1. RASILEZ [Suspect]
     Indication: HYPERTENSION
     Dosage: 150 MG, DAILY
     Route: 048
     Dates: start: 20111007, end: 20111118
  2. ALDOMET [Concomitant]
     Dosage: 500 MG, UNK
     Route: 048
  3. INDAPAMIDE [Concomitant]
     Dosage: 1 MG, UNK
     Route: 048
  4. ASPIRIN [Concomitant]
     Dosage: 100 MG, UNK
     Route: 048
  5. LANSOPRAZOLE [Concomitant]
     Dosage: 15 MG, UNK
     Route: 048
  6. JANUVIA [Concomitant]
     Dosage: 50 MG, UNK
     Route: 048
  7. METFORMIN HCL [Concomitant]
     Dosage: 500 MG, UNK
     Route: 048
  8. OLMESARTAN MEDOXOMIL [Concomitant]
     Dosage: 40 MG,
     Route: 049
  9. PRAVASTATIN SODIUM [Concomitant]
     Dosage: 5 MG, UNK
     Route: 048
  10. ALPRAZOLAM [Concomitant]
     Dosage: 0.8 MG, UNK
     Route: 048

REACTIONS (12)
  - BLOOD UREA INCREASED [None]
  - BLOOD URIC ACID INCREASED [None]
  - ALANINE AMINOTRANSFERASE INCREASED [None]
  - ASPARTATE AMINOTRANSFERASE INCREASED [None]
  - BLOOD CREATININE INCREASED [None]
  - BLOOD GLUCOSE INCREASED [None]
  - GLYCOSYLATED HAEMOGLOBIN INCREASED [None]
  - BLOOD ALKALINE PHOSPHATASE INCREASED [None]
  - GAMMA-GLUTAMYLTRANSFERASE INCREASED [None]
  - HYPERTRIGLYCERIDAEMIA [None]
  - EOSINOPHIL COUNT INCREASED [None]
  - BLOOD LACTATE DEHYDROGENASE INCREASED [None]
